FAERS Safety Report 14755678 (Version 1)
Quarter: 2018Q2

REPORT INFORMATION
  Report Type: Spontaneous
  Country: GR (occurrence: GR)
  Receive Date: 20180413
  Receipt Date: 20180413
  Transmission Date: 20180711
  Serious: Yes (Other)
  Sender: FDA-Public Use
  Company Number: GR-JAZZ-2018-GR-005445

PATIENT
  Age: 30 Month
  Sex: Male
  Weight: 18 kg

DRUGS (1)
  1. ASPARAGINASE [Suspect]
     Active Substance: ASPARAGINASE
     Indication: ACUTE LYMPHOCYTIC LEUKAEMIA
     Dosage: 3500 IU, UNK
     Route: 042
     Dates: start: 20140116, end: 20140116

REACTIONS (2)
  - Lip oedema [Recovered/Resolved]
  - Abdominal pain [Recovered/Resolved]
